FAERS Safety Report 9723325 (Version 1)
Quarter: 2013Q4

REPORT INFORMATION
  Report Type: Spontaneous
  Country: US (occurrence: US)
  Receive Date: 20131202
  Receipt Date: 20131202
  Transmission Date: 20140711
  Serious: No
  Sender: FDA-Public Use
  Company Number: US-GLAXOSMITHKLINE-A1003371A

PATIENT
  Age: 56 Year
  Sex: Male

DRUGS (2)
  1. FLUTICASONE PROPIONATE [Suspect]
     Indication: NASAL CONGESTION
     Route: 045
     Dates: start: 2011, end: 2011
  2. UNKNOWN SUPPLEMENT [Concomitant]

REACTIONS (1)
  - Increased upper airway secretion [Not Recovered/Not Resolved]
